FAERS Safety Report 22372152 (Version 1)
Quarter: 2023Q2

REPORT INFORMATION
  Report Type: Spontaneous
  Country: US (occurrence: US)
  Receive Date: 20230526
  Receipt Date: 20230526
  Transmission Date: 20230722
  Serious: Yes (Other)
  Sender: FDA-Public Use
  Company Number: US-BAYER-2023A068150

PATIENT
  Age: 60 Year
  Sex: Female

DRUGS (2)
  1. ALKA-SELTZER PLUS DAY AND NIGHT SEVERE COLD AND FLU [Suspect]
     Active Substance: ACETAMINOPHEN\DEXTROMETHORPHAN HYDROBROMIDE\DOXYLAMINE SUCCINATE\GUAIFENESIN\PHENYLEPHRINE HYDROCHLO
     Indication: Allergic respiratory symptom
     Dosage: 2 DF, QD
     Route: 048
     Dates: start: 20230513, end: 20230513
  2. ALKA-SELTZER PLUS DAY AND NIGHT SEVERE COLD AND FLU [Suspect]
     Active Substance: ACETAMINOPHEN\DEXTROMETHORPHAN HYDROBROMIDE\DOXYLAMINE SUCCINATE\GUAIFENESIN\PHENYLEPHRINE HYDROCHLO
     Indication: Nasopharyngitis

REACTIONS (1)
  - Choking [Recovered/Resolved]

NARRATIVE: CASE EVENT DATE: 20230513
